FAERS Safety Report 23470629 (Version 2)
Quarter: 2024Q1

REPORT INFORMATION
  Report Type: Other
  Country: US (occurrence: None)
  Receive Date: 20240202
  Receipt Date: 20240207
  Transmission Date: 20240410
  Serious: No
  Sender: FDA-Public Use
  Company Number: US-ROCHE-3502797

PATIENT
  Age: 48 Year
  Sex: Female

DRUGS (1)
  1. OCREVUS [Suspect]
     Active Substance: OCRELIZUMAB
     Indication: Multiple sclerosis
     Dosage: DAY 1 300 MG DAY 15 300 MG AND THEN 600 MG EVERY 6 MONTHS?DATE OF MOST RECENT INFUSION : 14/JUL/2023
     Route: 065
     Dates: start: 20230127

REACTIONS (2)
  - COVID-19 [Unknown]
  - Infusion related reaction [Unknown]
